FAERS Safety Report 25384386 (Version 1)
Quarter: 2025Q2

REPORT INFORMATION
  Report Type: Report from Study
  Country: US (occurrence: US)
  Receive Date: 20250602
  Receipt Date: 20250602
  Transmission Date: 20250716
  Serious: Yes (Other)
  Sender: UCB
  Company Number: US-UCBSA-2025014732

PATIENT
  Age: 53 Year
  Sex: Female

DRUGS (4)
  1. BIMEKIZUMAB [Suspect]
     Active Substance: BIMEKIZUMAB
     Indication: Psoriasis
     Dosage: 320 MILLIGRAM, EV 4 WEEKS
     Route: 058
     Dates: start: 20231001
  2. BIMEKIZUMAB [Suspect]
     Active Substance: BIMEKIZUMAB
     Indication: Psoriatic arthropathy
     Dosage: 320 MILLIGRAM, EV 8 WEEKS
     Route: 058
     Dates: start: 20250317
  3. BIMEKIZUMAB [Suspect]
     Active Substance: BIMEKIZUMAB
     Dosage: 320 MILLIGRAM, EV 4 WEEKS
     Route: 058
     Dates: start: 2025
  4. SOTYKTU [Concomitant]
     Active Substance: DEUCRAVACITINIB
     Indication: Psoriasis

REACTIONS (11)
  - Suicidal ideation [Not Recovered/Not Resolved]
  - Injection site pain [Recovered/Resolved]
  - Wound haemorrhage [Not Recovered/Not Resolved]
  - Psoriasis [Unknown]
  - Inappropriate schedule of product administration [Unknown]
  - Insurance issue [Unknown]
  - Therapeutic product effect incomplete [Unknown]
  - Product leakage [Unknown]
  - Incorrect dose administered [Unknown]
  - Wrong technique in product usage process [Unknown]
  - Therapeutic response shortened [Unknown]

NARRATIVE: CASE EVENT DATE: 20241204
